FAERS Safety Report 7163789-7 (Version None)
Quarter: 2010Q4

REPORT INFORMATION
  Report Type: 
  Country: None (occurrence: None)
  Receive Date: 20101210
  Receipt Date: 20101210
  Transmission Date: 20110411
  Serious: Yes (Other)
  Sender: FDA-Public Use
  Company Number: None

PATIENT
  Age: 34 Year
  Sex: Female
  Weight: 93.441 kg

DRUGS (3)
  1. HYDROMORPHONE HYDROCHLORIDE [Suspect]
     Indication: CHOLELITHIASIS
     Dosage: 2MG Q4H PRN PAIN IV
     Route: 042
     Dates: start: 20101024, end: 20101026
  2. DILAUDID [Concomitant]
  3. BENADRYL [Concomitant]

REACTIONS (1)
  - RASH PRURITIC [None]
